FAERS Safety Report 6148738-2 (Version None)
Quarter: 2009Q2

REPORT INFORMATION
  Report Type: 
  Country: None (occurrence: None)
  Receive Date: 20090408
  Receipt Date: 20090331
  Transmission Date: 20091009
  Serious: Yes (Hospitalization, Disabling)
  Sender: FDA-Public Use
  Company Number: FR-BAXTER-2009BH005262

PATIENT
  Age: 30 Year
  Sex: Male

DRUGS (2)
  1. ENDOXAN BAXTER [Suspect]
     Indication: INFLAMMATION
     Route: 042
  2. ENDOXAN BAXTER [Suspect]
     Indication: OFF LABEL USE
     Route: 042

REACTIONS (1)
  - NECROSIS [None]
